FAERS Safety Report 5814183-X (Version None)
Quarter: 2008Q3

REPORT INFORMATION
  Report Type: 
  Country: None (occurrence: None)
  Receive Date: 20080715
  Receipt Date: 20080710
  Transmission Date: 20090109
  Serious: Yes (Other)
  Sender: FDA-Public Use
  Company Number: 2008SP011284

PATIENT
  Age: 45 Year
  Sex: Female

DRUGS (6)
  1. PEG-INTRON [Suspect]
     Indication: HEPATITIS C
     Dosage: 150 MCG; QW; SC
     Route: 058
     Dates: start: 20080206
  2. REBETOL [Suspect]
     Indication: HEPATITIS C
     Dosage: 400 MG; BID; PO
     Route: 048
     Dates: start: 20080206
  3. VERAPAMIL (CON.) [Concomitant]
  4. PAXIL (CON.) [Concomitant]
  5. ATIVAN (CON.) [Concomitant]
  6. ULTRAM (CON.) [Concomitant]

REACTIONS (3)
  - BREAST CANCER FEMALE [None]
  - PLATELET COUNT DECREASED [None]
  - WHITE BLOOD CELL COUNT DECREASED [None]
